FAERS Safety Report 6381433-3 (Version None)
Quarter: 2009Q3

REPORT INFORMATION
  Report Type: 
  Country: None (occurrence: None)
  Receive Date: 20090929
  Receipt Date: 20090917
  Transmission Date: 20100115
  Serious: Yes (Other)
  Sender: FDA-Public Use
  Company Number: NL-AMGEN-UK364340

PATIENT
  Age: 30 Year
  Sex: Female

DRUGS (2)
  1. NEULASTA [Suspect]
     Indication: DRUG USE FOR UNKNOWN INDICATION
     Route: 065
  2. TAXOTERE [Concomitant]

REACTIONS (4)
  - FEELING HOT [None]
  - FLUSHING [None]
  - SKIN BURNING SENSATION [None]
  - SWELLING FACE [None]
